FAERS Safety Report 16770882 (Version 8)
Quarter: 2021Q1

REPORT INFORMATION
  Report Type: Report from Study
  Country: US (occurrence: US)
  Receive Date: 20190904
  Receipt Date: 20210311
  Transmission Date: 20210419
  Serious: Yes (Other)
  Sender: FDA-Public Use
  Company Number: PHEH2019US036458

PATIENT
  Age: 63 Year
  Sex: Female

DRUGS (2)
  1. MAYZENT [Suspect]
     Active Substance: SIPONIMOD
     Indication: SECONDARY PROGRESSIVE MULTIPLE SCLEROSIS
     Dosage: 2 MG, QD
     Route: 048
     Dates: start: 20190901
  2. GILENYA [Suspect]
     Active Substance: FINGOLIMOD HYDROCHLORIDE
     Indication: PRODUCT USED FOR UNKNOWN INDICATION
     Route: 065

REACTIONS (9)
  - Insomnia [Unknown]
  - Fatigue [Unknown]
  - Stress [Unknown]
  - Oral herpes [Unknown]
  - Injection site pain [Unknown]
  - Headache [Unknown]
  - Multiple sclerosis [Unknown]
  - Dysstasia [Unknown]
  - Malaise [Unknown]

NARRATIVE: CASE EVENT DATE: 20200205
